FAERS Safety Report 5170827-X (Version None)
Quarter: 2006Q4

REPORT INFORMATION
  Report Type: 
  Country: None (occurrence: None)
  Receive Date: 20061213
  Receipt Date: 20061120
  Transmission Date: 20070319
  Serious: Yes (Life-Threatening, Hospitalization, Other)
  Sender: FDA-Public Use
  Company Number: US-KINGPHARMUSA00001-K200601497

PATIENT
  Age: 70 Year
  Sex: Male

DRUGS (10)
  1. ALTACE [Suspect]
     Indication: HYPERTENSION
     Dosage: 10 MG, QD
     Route: 048
     Dates: start: 20030101, end: 20061002
  2. DOCETAXEL [Suspect]
     Indication: PROSTATE CANCER
     Dosage: 149 MG, Q3WEEKS
     Route: 042
     Dates: start: 20050617, end: 20050819
  3. BUSERELIN [Suspect]
     Indication: PROSTATE CANCER
     Dosage: 9.45 MG, Q 3 MONTHS
     Route: 058
     Dates: start: 20050517
  4. TRAZODONE HCL [Concomitant]
     Indication: DEPRESSION
     Dosage: 150 MG, UNK
     Route: 048
     Dates: end: 20061002
  5. METFORMIN [Concomitant]
     Indication: DIABETES MELLITUS
     Dosage: 1500 MG, UNK
     Route: 048
     Dates: start: 20041201
  6. GLYBURIDE [Concomitant]
     Indication: DIABETES MELLITUS
     Dosage: 20 MG, UNK
     Route: 048
     Dates: start: 20020101
  7. SIMVASTATIN [Concomitant]
     Indication: HYPERCHOLESTEROLAEMIA
     Dosage: 20 MG, UNK
     Route: 048
     Dates: start: 20030101
  8. NORVASC [Concomitant]
     Indication: HYPERTENSION
     Dosage: 5 MG, UNK
     Route: 048
     Dates: start: 20041201, end: 20061002
  9. OXYBUTYNIN [Concomitant]
     Indication: URINARY RETENTION
     Dosage: 5 MG, UNK
     Route: 048
     Dates: start: 20060801
  10. SENNA ALEXANDRINA [Concomitant]
     Indication: CONSTIPATION

REACTIONS (1)
  - MYOCARDIAL INFARCTION [None]
